FAERS Safety Report 7085591-7 (Version None)
Quarter: 2010Q4

REPORT INFORMATION
  Report Type: 
  Country: None (occurrence: None)
  Receive Date: 20101028
  Receipt Date: 20070327
  Transmission Date: 20110411
  Serious: Yes (Other)
  Sender: FDA-Public Use
  Company Number: 2010004528

PATIENT

DRUGS (3)
  1. TARCEVA [Suspect]
     Indication: COLON CANCER METASTATIC
     Dosage: ORAL
     Route: 048
  2. AVASTIN [Suspect]
     Indication: COLON CANCER METASTATIC
  3. XELODA [Suspect]
     Indication: NEOPLASM MALIGNANT

REACTIONS (1)
  - HAEMORRHAGE [None]
